FAERS Safety Report 10029628 (Version 1)
Quarter: 2014Q1

REPORT INFORMATION
  Report Type: Report from Study
  Country: US (occurrence: US)
  Receive Date: 20140322
  Receipt Date: 20140322
  Transmission Date: 20141002
  Serious: Yes (Hospitalization)
  Sender: FDA-Public Use
  Company Number: US-MERCK-1403USA008740

PATIENT
  Age: 42 Year
  Sex: Female
  Weight: 70 kg

DRUGS (20)
  1. VORINOSTAT [Suspect]
     Indication: CHRONIC LYMPHOCYTIC LEUKAEMIA
     Dosage: 400 MG, QD; CYCLE 1 DAYS 1-5
     Route: 048
     Dates: start: 20140303, end: 20140307
  2. VORINOSTAT [Suspect]
     Dosage: 400 MG: QD: CYCLE 1: DAYS 8-12
     Route: 048
     Dates: start: 20140311, end: 20140313
  3. FLUDARABINE [Suspect]
     Indication: CHRONIC LYMPHOCYTIC LEUKAEMIA
     Dosage: 45 MG, QD CYCLE 1 DAYS 1-3
     Route: 042
     Dates: start: 20140303, end: 20140305
  4. CYCLOPHOSPHAMIDE [Suspect]
     Indication: CHRONIC LYMPHOCYTIC LEUKAEMIA
     Dosage: 45 MG, QD CYCLE 1 DAYS 1-3
     Route: 042
     Dates: start: 20140303, end: 20140305
  5. RITUXIMAB [Suspect]
     Indication: CHRONIC LYMPHOCYTIC LEUKAEMIA
     Dosage: 670 MG, UNK
     Route: 042
     Dates: start: 20140305
  6. HYDROXYCHLOROQUINE SULFATE [Concomitant]
     Dosage: 200 MG, QD
     Route: 048
  7. WARFARIN SODIUM [Concomitant]
     Dosage: UNK
  8. SIMVASTATIN TABLETS, USP [Concomitant]
     Dosage: 40 MG, QD
     Route: 048
  9. VITAMINS (UNSPECIFIED) [Concomitant]
     Dosage: UNK
  10. ACYCLOVIR [Concomitant]
     Dosage: 400 MG, QD
     Route: 048
  11. SULFAMETHOXAZOLE (+) TRIMETHOPRIM [Concomitant]
     Dosage: 1 DF, QD: TRIMETHOPRIME 160MG-SULFAMETHOXAZOLE 800 MG
  12. ACETAMINOPHEN [Concomitant]
     Dosage: 650 MG, Q4H PRN
  13. BISACODYL [Concomitant]
     Dosage: 10 MG, QD PRN
     Route: 048
  14. LORAZEPAM [Concomitant]
     Dosage: 0.5-1MG Q6H; PRN
  15. ONDANSETRON [Concomitant]
     Dosage: 4-6 MG, QD PRN
     Route: 048
  16. OXYCODONE [Concomitant]
     Dosage: 5-10MG Q4H; PRN
     Route: 048
  17. TRAMADOL HYDROCHLORIDE [Concomitant]
     Dosage: 50 MG, Q6H PRN
     Route: 048
  18. PROCHLORPERAZINE [Concomitant]
     Dosage: 5-10 MG Q8H;  PRN
     Route: 048
  19. NICORETTE (NICOTINE POLACRILEX) [Concomitant]
     Dosage: UNK, PRN
  20. EFFEXOR [Concomitant]
     Dosage: 150 MG, QD
     Route: 048

REACTIONS (2)
  - Back pain [Unknown]
  - Pyrexia [Unknown]
